FAERS Safety Report 13066191 (Version 2)
Quarter: 2017Q4

REPORT INFORMATION
  Report Type: Spontaneous
  Country: SI (occurrence: SI)
  Receive Date: 20161227
  Receipt Date: 20171120
  Transmission Date: 20180320
  Serious: Yes (Other)
  Sender: FDA-Public Use
  Company Number: SI-BAYER-2016-242053

PATIENT
  Age: 84 Year
  Sex: Female

DRUGS (5)
  1. XARELTO [Suspect]
     Active Substance: RIVAROXABAN
     Indication: ATRIAL FIBRILLATION
     Dosage: 20 MG, QD
     Dates: start: 201609, end: 2016
  2. STATIN [Concomitant]
     Active Substance: UNSPECIFIED INGREDIENT
     Dosage: UNK
  3. PERINDOPRIL [Concomitant]
     Active Substance: PERINDOPRIL
     Dosage: 4 MG, QD
     Dates: start: 1996
  4. XARELTO [Suspect]
     Active Substance: RIVAROXABAN
     Indication: ATRIAL FIBRILLATION
     Dosage: 15 MG, QD
  5. ASPIRIN PROTECT 100 MG [Suspect]
     Active Substance: ASPIRIN
     Indication: ATRIAL FIBRILLATION
     Dosage: 100 MG, QD
     Dates: start: 20161010, end: 20161114

REACTIONS (11)
  - Malaise [Recovered/Resolved]
  - Gait disturbance [None]
  - Intentional dose omission [None]
  - Condition aggravated [None]
  - Joint range of motion decreased [None]
  - Hypoaesthesia [None]
  - Red blood cell sedimentation rate increased [None]
  - Fatigue [None]
  - Myalgia [None]
  - C-reactive protein increased [None]
  - Myalgia [None]

NARRATIVE: CASE EVENT DATE: 2016
